FAERS Safety Report 18870450 (Version 1)
Quarter: 2021Q1

REPORT INFORMATION
  Report Type: Spontaneous
  Country: US (occurrence: US)
  Receive Date: 20210209
  Receipt Date: 20210209
  Transmission Date: 20210420
  Serious: Yes (Other)
  Sender: FDA-Public Use
  Company Number: US-PFIZER INC-2021117323

PATIENT
  Age: 50 Year
  Sex: Female

DRUGS (11)
  1. TYLENOL [Concomitant]
     Active Substance: ACETAMINOPHEN
     Dosage: UNK
  2. AMOXICILLIN. [Concomitant]
     Active Substance: AMOXICILLIN
     Dosage: UNK
  3. FLEXERIL [CEFIXIME] [Concomitant]
     Active Substance: CEFIXIME
     Dosage: UNK
  4. OCREVUS [Concomitant]
     Active Substance: OCRELIZUMAB
     Dosage: UNK
  5. FLECTOR EP [Concomitant]
     Active Substance: DICLOFENAC EPOLAMINE
     Dosage: UNK
  6. PROTONIX [OMEPRAZOLE] [Concomitant]
     Active Substance: OMEPRAZOLE
     Dosage: UNK
  7. ALBUTEROL HFA [Concomitant]
     Active Substance: ALBUTEROL SULFATE
     Dosage: UNK
  8. SOLU?MEDROL [Suspect]
     Active Substance: METHYLPREDNISOLONE SODIUM SUCCINATE
     Indication: PREMEDICATION
     Dosage: UNK
  9. BENADRYL [Concomitant]
     Active Substance: DIPHENHYDRAMINE HYDROCHLORIDE
     Dosage: UNK
  10. PROVIGIL [Concomitant]
     Active Substance: MODAFINIL
     Dosage: UNK
  11. NORCO [Concomitant]
     Active Substance: ACETAMINOPHEN\HYDROCODONE BITARTRATE
     Dosage: UNK

REACTIONS (1)
  - Multiple sclerosis [Recovered/Resolved]

NARRATIVE: CASE EVENT DATE: 20201209
